FAERS Safety Report 8382408-5 (Version None)
Quarter: 2012Q2

REPORT INFORMATION
  Report Type: 
  Country: None (occurrence: None)
  Receive Date: 20120524
  Receipt Date: 20120515
  Transmission Date: 20120825
  Serious: Yes (Other)
  Sender: FDA-Public Use
  Company Number: PHHY2010BR50410

PATIENT
  Sex: Female
  Weight: 75 kg

DRUGS (8)
  1. MECLOZINE HYDROCHLORIDE [Concomitant]
     Indication: NAUSEA
     Dosage: 100 MG, DAILY
     Dates: start: 20100101
  2. INSULIN [Concomitant]
     Indication: DIABETES MELLITUS
  3. EXFORGE [Suspect]
     Indication: HYPERTENSION
     Dosage: 1 DF (160/5 MG), DAILY
     Route: 048
  4. FLUOXETINE [Concomitant]
     Indication: DEPRESSION
     Dosage: 40 MG, DAILY
  5. OTILONIUM BROMIDE [Concomitant]
     Dosage: 1 DF, BID
  6. ALPRAZOLAM [Concomitant]
     Indication: IRRITABLE BOWEL SYNDROME
     Dosage: 2 MG, BID
  7. GLUCOSAMINE SULFATE W/CHONDROITIN [Concomitant]
     Indication: OSTEOARTHRITIS
     Dosage: 1 DF (1.6/1.6 G), DAILY
  8. KETOROLAC TROMETHAMINE [Concomitant]
     Indication: HEADACHE
     Dosage: 10 MG, DAILY

REACTIONS (1)
  - DIABETES MELLITUS [None]
